FAERS Safety Report 25996919 (Version 2)
Quarter: 2025Q4

REPORT INFORMATION
  Report Type: Spontaneous
  Country: EU (occurrence: None)
  Receive Date: 20251104
  Receipt Date: 20251113
  Transmission Date: 20260118
  Serious: Yes (Hospitalization)
  Sender: ORGANON
  Company Number: EU-ORGANON-O2510POL002747

PATIENT
  Age: 69 Year
  Sex: Female

DRUGS (1)
  1. MOMETASONE FUROATE [Suspect]
     Active Substance: MOMETASONE FUROATE
     Indication: Rash
     Dosage: UNK, (STRENGHT: 1MG/G)

REACTIONS (5)
  - Rash [Not Recovered/Not Resolved]
  - Application site burn [Unknown]
  - Rosacea [Unknown]
  - Product prescribing issue [Unknown]
  - Product use in unapproved indication [Unknown]
